FAERS Safety Report 25529751 (Version 2)
Quarter: 2025Q3

REPORT INFORMATION
  Report Type: Spontaneous
  Country: QA (occurrence: QA)
  Receive Date: 20250708
  Receipt Date: 20250715
  Transmission Date: 20251020
  Serious: Yes (Life-Threatening, Hospitalization)
  Sender: PFIZER
  Company Number: QA-MLMSERVICE-20250627-PI558419-00175-1

PATIENT
  Age: 58 Year
  Sex: Female

DRUGS (2)
  1. HEPARIN SODIUM [Suspect]
     Active Substance: HEPARIN SODIUM
     Indication: Thrombosis prophylaxis
  2. PYRIDOSTIGMINE [Concomitant]
     Active Substance: PYRIDOSTIGMINE
     Indication: Myasthenia gravis
     Route: 048

REACTIONS (2)
  - Cerebral venous sinus thrombosis [Recovering/Resolving]
  - Heparin-induced thrombocytopenia [Recovered/Resolved]
